FAERS Safety Report 10385910 (Version 2)
Quarter: 2014Q3

REPORT INFORMATION
  Report Type: Report from Study
  Country: JP (occurrence: JP)
  Receive Date: 20140814
  Receipt Date: 20140926
  Transmission Date: 20150326
  Serious: Yes (Other)
  Sender: FDA-Public Use
  Company Number: JP-AMGEN-JPNCT2014061388

PATIENT
  Sex: Male
  Weight: 51 kg

DRUGS (13)
  1. ZOMETA [Concomitant]
     Active Substance: ZOLEDRONIC ACID
     Dosage: 4 MG, UNK
     Dates: start: 20111105, end: 20120828
  2. FLUITRAN [Concomitant]
     Active Substance: TRICHLORMETHIAZIDE
     Dosage: 1 DF, QD
     Route: 048
  3. DENOSUMAB [Suspect]
     Active Substance: DENOSUMAB
     Indication: METASTASES TO BONE
     Dosage: 60 MG, UNK
     Route: 058
     Dates: start: 20130521, end: 20140204
  4. DENOTAS [Concomitant]
     Active Substance: CALCIUM CARBONATE\CHOLECALCIFEROL\MAGNESIUM CARBONATE
     Dosage: 2 DF, QD
     Route: 048
     Dates: start: 20130618, end: 20140304
  5. CELECOX [Concomitant]
     Active Substance: CELECOXIB
     Dosage: 2 DF, QD
     Route: 048
  6. CEROCRAL [Concomitant]
     Active Substance: IFENPRODIL
     Dosage: 60 MG, QD
     Route: 048
  7. FERROMIA [Concomitant]
     Active Substance: FERROUS CITRATE
     Dosage: 100 MG, QD
     Route: 048
     Dates: start: 20130716
  8. PLETAAL [Concomitant]
     Active Substance: CILOSTAZOL
     Dosage: 100 MG, QD
     Route: 048
  9. ODYNE [Concomitant]
     Active Substance: FLUTAMIDE
     Dosage: UNK
     Route: 065
     Dates: start: 20130326
  10. LEUPRORELIN ACETATE [Concomitant]
     Active Substance: LEUPROLIDE ACETATE
     Dosage: UNK
     Route: 065
     Dates: start: 20110705
  11. MIRCERA [Concomitant]
     Active Substance: PEGZEREPOETIN ALFA
     Dosage: 75 MUG, Q2WK
     Route: 058
     Dates: start: 20130910
  12. MUCOSTA [Concomitant]
     Active Substance: REBAMIPIDE
     Dosage: 2 DF, QD
     Route: 048
  13. MICAMLO [Concomitant]
     Active Substance: AMLODIPINE BESYLATE\TELMISARTAN
     Dosage: 1 DF, QD
     Route: 048

REACTIONS (2)
  - Osteonecrosis of jaw [Recovering/Resolving]
  - Hypophosphataemia [Recovering/Resolving]

NARRATIVE: CASE EVENT DATE: 20140107
